FAERS Safety Report 6002295-X (Version None)
Quarter: 2008Q4

REPORT INFORMATION
  Report Type: 
  Country: None (occurrence: None)
  Receive Date: 20081215
  Receipt Date: 20071205
  Transmission Date: 20090506
  Serious: No
  Sender: FDA-Public Use
  Company Number: US-AMGEN-KDL254256

PATIENT
  Sex: Female

DRUGS (8)
  1. ENBREL [Suspect]
     Indication: PSORIATIC ARTHROPATHY
     Route: 058
     Dates: start: 20030301
  2. DIAZEPAM [Concomitant]
     Dates: start: 20071009
  3. LEVOTHYROXINE SODIUM [Concomitant]
     Dates: start: 20050802
  4. ACIPHEX [Concomitant]
     Dates: start: 20070423
  5. RISEDRONATE SODIUM [Concomitant]
     Dates: start: 20071001
  6. ZOLPIDEM [Concomitant]
     Dates: start: 20031103
  7. LORTAB [Concomitant]
     Dates: start: 20030703
  8. ETODOLAC [Concomitant]
     Dates: start: 20030703

REACTIONS (1)
  - LIPOMA [None]
